FAERS Safety Report 24970548 (Version 2)
Quarter: 2025Q1

REPORT INFORMATION
  Report Type: Spontaneous
  Country: FR (occurrence: FR)
  Receive Date: 20250214
  Receipt Date: 20250304
  Transmission Date: 20250409
  Serious: Yes (Other)
  Sender: BAUSCH AND LOMB
  Company Number: FR-Pharmaand-2025000106

PATIENT
  Age: 53 Year
  Sex: Female

DRUGS (11)
  1. RIBAVIRIN [Interacting]
     Active Substance: RIBAVIRIN
     Indication: Hepatitis C
     Route: 065
  2. PEGINTERFERON ALFA-2B [Interacting]
     Active Substance: PEGINTERFERON ALFA-2B
     Indication: Hepatitis C
     Route: 065
  3. TACROLIMUS [Interacting]
     Active Substance: TACROLIMUS
     Indication: Immunosuppression
     Route: 065
  4. TELAPREVIR [Interacting]
     Active Substance: TELAPREVIR
     Indication: Immunosuppression
     Route: 065
  5. RITONAVIR [Interacting]
     Active Substance: RITONAVIR
     Indication: Antiretroviral therapy
     Dosage: ONCE DAILY
     Route: 065
  6. DARUNAVIR [Interacting]
     Active Substance: DARUNAVIR
     Dosage: ONCE DAILY
     Route: 065
  7. RALTEGRAVIR [Interacting]
     Active Substance: RALTEGRAVIR
     Indication: Antiretroviral therapy
     Route: 065
  8. ABACAVIR\LAMIVUDINE [Interacting]
     Active Substance: ABACAVIR\LAMIVUDINE
     Indication: Antiretroviral therapy
     Route: 065
  9. ABACAVIR\LAMIVUDINE [Interacting]
     Active Substance: ABACAVIR\LAMIVUDINE
     Route: 065
  10. TENOFOVIR [Interacting]
     Active Substance: TENOFOVIR
     Indication: Antiretroviral therapy
     Route: 065
  11. MYCOPHENOLATE MOFETIL [Interacting]
     Active Substance: MYCOPHENOLATE MOFETIL
     Indication: Immunosuppression
     Route: 065

REACTIONS (3)
  - Thrombocytopenia [Unknown]
  - Anaemia [Unknown]
  - Drug interaction [Unknown]
